FAERS Safety Report 10369220 (Version 1)
Quarter: 2014Q1

REPORT INFORMATION
  Report Type: Spontaneous
  Country: US (occurrence: None)
  Receive Date: 20140306
  Receipt Date: 20140306
  Transmission Date: 20141002
  Serious: Yes (Hospitalization)
  Sender: FDA-Public Use
  Company Number: 163-21880-13022203

PATIENT
  Age: 81 Year
  Sex: Female

DRUGS (6)
  1. REVLIMID [Suspect]
     Indication: PLASMA CELL MYELOMA
     Route: 048
     Dates: start: 20121016
  2. CALTRATE 600 + VITAMIN D (CALCITE D) [Concomitant]
  3. LIPITOR (ATORVASTATIN) (TABLETS) [Concomitant]
  4. TYLENOL (PARACETAMOL) [Concomitant]
  5. VITAMIN D (ERGOCALCIFEROL) [Concomitant]
  6. WARFARIN SODIUM (WARFARIN SODIUM) [Concomitant]

REACTIONS (6)
  - Back pain [None]
  - Decreased appetite [None]
  - Weight decreased [None]
  - Dizziness [None]
  - Abdominal discomfort [None]
  - Diarrhoea [None]
